FAERS Safety Report 8727122 (Version 2)
Quarter: 2012Q4

REPORT INFORMATION
  Report Type: 
  Country: US (occurrence: US)
  Receive Date: 20120816
  Receipt Date: 20120913
  Transmission Date: 20130627
  Serious: Yes (Death, Other)
  Sender: FDA-Public Use
  Company Number: US-BRISTOL-MYERS SQUIBB COMPANY-16847709

PATIENT
  Age: 83 Year
  Sex: Male

DRUGS (1)
  1. YERVOY [Suspect]
     Indication: METASTATIC MALIGNANT MELANOMA
     Route: 042
     Dates: start: 20120531

REACTIONS (7)
  - Pneumonia [Fatal]
  - Colitis ulcerative [Fatal]
  - Gastritis [Unknown]
  - Atrial fibrillation [Unknown]
  - Thrombosis [Unknown]
  - Cystitis [Unknown]
  - Oesophagitis [Unknown]
